FAERS Safety Report 18103421 (Version 1)
Quarter: 2020Q3

REPORT INFORMATION
  Report Type: Spontaneous
  Country: IT (occurrence: IT)
  Receive Date: 20200803
  Receipt Date: 20200803
  Transmission Date: 20201103
  Serious: Yes (Hospitalization)
  Sender: FDA-Public Use
  Company Number: NVSC2020IT214852

PATIENT
  Age: 95 Year
  Sex: Male

DRUGS (1)
  1. TEGRETOL [Suspect]
     Active Substance: CARBAMAZEPINE
     Indication: PRODUCT USED FOR UNKNOWN INDICATION
     Dosage: 800 MG, QD (ERRORE TERAPEUTICO)
     Route: 048
     Dates: start: 20200520, end: 20200523

REACTIONS (6)
  - Vomiting [Unknown]
  - Bradycardia [Unknown]
  - Poisoning [Unknown]
  - Asthenia [Unknown]
  - Fall [Unknown]
  - Medication error [Unknown]

NARRATIVE: CASE EVENT DATE: 20200523
